FAERS Safety Report 7076673-4 (Version None)
Quarter: 2010Q4

REPORT INFORMATION
  Report Type: 
  Country: None (occurrence: None)
  Receive Date: 20101101
  Receipt Date: 20101026
  Transmission Date: 20110411
  Serious: Yes (Other)
  Sender: FDA-Public Use
  Company Number: US-PFIZER INC-2010136675

PATIENT

DRUGS (1)
  1. TOVIAZ [Suspect]
     Dosage: 8 MG, UNK

REACTIONS (2)
  - CHEST PAIN [None]
  - ILL-DEFINED DISORDER [None]
